FAERS Safety Report 4433206-6 (Version None)
Quarter: 2004Q3

REPORT INFORMATION
  Report Type: 
  Country: None (occurrence: None)
  Receive Date: 20040823
  Receipt Date: 20040817
  Transmission Date: 20050211
  Serious: Yes (Hospitalization)
  Sender: FDA-Public Use
  Company Number: HQWYE335317AUG04

PATIENT
  Sex: Male

DRUGS (3)
  1. AMIODARONE HCL [Suspect]
     Indication: VENTRICULAR TACHYCARDIA
     Dosage: 400 MG 1X PER 1 DAY ORAL
     Route: 048
     Dates: start: 20040726, end: 20040804
  2. SHINBIT (NIFEKALANT HYDROCHLORIDE) [Concomitant]
  3. UNSPECIFIED DIURETIC (UNSPECIFIED DIURETIC) [Concomitant]

REACTIONS (3)
  - EFFUSION [None]
  - POSTOPERATIVE WOUND COMPLICATION [None]
  - SKIN ULCER [None]
